FAERS Safety Report 20079595 (Version 4)
Quarter: 2022Q3

REPORT INFORMATION
  Report Type: Spontaneous
  Country: JP (occurrence: JP)
  Receive Date: 20211117
  Receipt Date: 20220714
  Transmission Date: 20221026
  Serious: Yes (Death, Other)
  Sender: FDA-Public Use
  Company Number: JP-GLAXOSMITHKLINE-JP2021JPN235380

PATIENT

DRUGS (2)
  1. MEPOLIZUMAB [Suspect]
     Active Substance: MEPOLIZUMAB
     Indication: Eosinophilic granulomatosis with polyangiitis
     Dosage: 300 MG, ONCE IN 4WEEKS
     Route: 058
     Dates: start: 20191119, end: 20210817
  2. PREDNISOLONE [Concomitant]
     Active Substance: PREDNISOLONE
     Dosage: UNK

REACTIONS (8)
  - Left atrial enlargement [Fatal]
  - Wheezing [Fatal]
  - Tracheal compression [Fatal]
  - Oesophageal compression [Fatal]
  - Decreased appetite [Fatal]
  - Low cardiac output syndrome [Fatal]
  - Condition aggravated [Fatal]
  - Cardiac failure acute [Fatal]

NARRATIVE: CASE EVENT DATE: 20210817
